FAERS Safety Report 14652201 (Version 1)
Quarter: 2018Q1

REPORT INFORMATION
  Report Type: Spontaneous
  Country: DE (occurrence: DE)
  Receive Date: 20180318
  Receipt Date: 20180318
  Transmission Date: 20180509
  Serious: Yes (Hospitalization)
  Sender: FDA-Public Use
  Company Number: PHHY2018DE045651

PATIENT
  Age: 59 Year
  Sex: Male

DRUGS (4)
  1. VALSACOR [Concomitant]
     Active Substance: VALSARTAN
     Indication: PRODUCT USED FOR UNKNOWN INDICATION
     Dosage: UNK
     Route: 065
  2. METHOTREXATE. [Suspect]
     Active Substance: METHOTREXATE
     Indication: PSORIATIC ARTHROPATHY
     Dosage: 10 MG, UNK
     Route: 058
     Dates: start: 20130220, end: 20171019
  3. REMICADE [Suspect]
     Active Substance: INFLIXIMAB
     Dosage: 425 MG, UNK
     Route: 042
  4. REMICADE [Suspect]
     Active Substance: INFLIXIMAB
     Indication: PSORIATIC ARTHROPATHY
     Dosage: 425 MG, UNK
     Route: 042

REACTIONS (1)
  - Gliosis [Unknown]

NARRATIVE: CASE EVENT DATE: 20171018
